FAERS Safety Report 6250177-0 (Version None)
Quarter: 2009Q2

REPORT INFORMATION
  Report Type: 
  Country: None (occurrence: None)
  Receive Date: 20090626
  Receipt Date: 20090612
  Transmission Date: 20091009
  Serious: Yes (Hospitalization, Other)
  Sender: FDA-Public Use
  Company Number: 236652K09USA

PATIENT
  Age: 30 Year
  Sex: Female

DRUGS (5)
  1. REBIF [Suspect]
     Indication: MULTIPLE SCLEROSIS
     Dosage: 44 MCG, 3 IN 1 WEEKS, SUBCUTANEOUS
     Route: 058
     Dates: start: 20081212
  2. SOLU-MEDROL [Suspect]
     Indication: MULTIPLE SCLEROSIS
     Dosage: INTRAVENOUS, NOT OTHERWISE SPECIFIED, INTRAVENOUS, NOT OTHERWISE SPECIFIED
     Route: 042
     Dates: start: 20090401, end: 20090401
  3. SOLU-MEDROL [Suspect]
     Indication: MULTIPLE SCLEROSIS
     Dosage: INTRAVENOUS, NOT OTHERWISE SPECIFIED, INTRAVENOUS, NOT OTHERWISE SPECIFIED
     Route: 042
     Dates: start: 20080601, end: 20090601
  4. LYRICA [Concomitant]
  5. MULTI-VITAMINS [Concomitant]

REACTIONS (10)
  - ABDOMINAL PAIN [None]
  - ANAPHYLACTIC REACTION [None]
  - CAMPYLOBACTER INTESTINAL INFECTION [None]
  - COMPLEX PARTIAL SEIZURES [None]
  - DIZZINESS [None]
  - DYSARTHRIA [None]
  - DYSGRAPHIA [None]
  - FOOD POISONING [None]
  - GASTROINTESTINAL DISORDER [None]
  - INFLUENZA LIKE ILLNESS [None]
